FAERS Safety Report 5059246-4 (Version None)
Quarter: 2006Q3

REPORT INFORMATION
  Report Type: 
  Country: None (occurrence: None)
  Receive Date: 20060718
  Receipt Date: 20060712
  Transmission Date: 20061208
  Serious: Yes (Other)
  Sender: FDA-Public Use
  Company Number: 0602488US

PATIENT
  Age: 74 Year
  Sex: Male

DRUGS (1)
  1. OCUFEN [Suspect]
     Indication: POSTOPERATIVE CARE
     Dosage: OPHTHALMIC
     Route: 047

REACTIONS (4)
  - CATARACT [None]
  - CATARACT OPERATION COMPLICATION [None]
  - CONJUNCTIVITIS ALLERGIC [None]
  - POSTERIOR CAPSULE OPACIFICATION [None]
